FAERS Safety Report 17016148 (Version 2)
Quarter: 2019Q4

REPORT INFORMATION
  Report Type: Spontaneous
  Country: US (occurrence: US)
  Receive Date: 20191111
  Receipt Date: 20191119
  Transmission Date: 20200122
  Serious: No
  Sender: FDA-Public Use
  Company Number: US-PFIZER INC-2019418601

PATIENT
  Age: 81 Year
  Sex: Male

DRUGS (1)
  1. TALZENNA [Suspect]
     Active Substance: TALAZOPARIB TOSYLATE
     Indication: ADENOCARCINOMA PANCREAS
     Dosage: 1 MG, UNK

REACTIONS (6)
  - Alopecia [Unknown]
  - Off label use [Unknown]
  - Product use in unapproved indication [Unknown]
  - Discomfort [Unknown]
  - Neoplasm progression [Unknown]
  - Weight decreased [Unknown]
